FAERS Safety Report 7689717-3 (Version None)
Quarter: 2011Q3

REPORT INFORMATION
  Report Type: 
  Country: None (occurrence: None)
  Receive Date: 20110817
  Receipt Date: 20110812
  Transmission Date: 20111222
  Serious: Yes (Other)
  Sender: FDA-Public Use
  Company Number: US-ABBOTT-11P-163-0846662-00

PATIENT
  Age: 70 Year
  Sex: Male

DRUGS (6)
  1. HUMIRA [Suspect]
     Dates: end: 20110701
  2. HUMIRA [Suspect]
     Dates: start: 20110802
  3. VITAMIN TAB [Concomitant]
     Indication: VITAMIN SUPPLEMENTATION
  4. HUMIRA [Suspect]
     Indication: PSORIATIC ARTHROPATHY
     Dates: start: 20080101, end: 20080101
  5. FISH OIL [Concomitant]
     Indication: SUPPLEMENTATION THERAPY
  6. FLAXSEED [Concomitant]
     Indication: SUPPLEMENTATION THERAPY

REACTIONS (8)
  - KNEE OPERATION [None]
  - MYASTHENIA GRAVIS [None]
  - BLOOD CHOLESTEROL INCREASED [None]
  - UMBILICAL HERNIA REPAIR [None]
  - ARTHRITIS [None]
  - HYPERTENSION [None]
  - PSORIATIC ARTHROPATHY [None]
  - GASTROOESOPHAGEAL REFLUX DISEASE [None]
